FAERS Safety Report 19402009 (Version 1)
Quarter: 2021Q2

REPORT INFORMATION
  Report Type: Spontaneous
  Country: US (occurrence: US)
  Receive Date: 20210611
  Receipt Date: 20210611
  Transmission Date: 20210717
  Serious: Yes (Hospitalization)
  Sender: FDA-Public Use
  Company Number: US-INFO-001243

PATIENT
  Sex: Female

DRUGS (3)
  1. CALCIUM CARBONATE (ANTACID) [Concomitant]
     Active Substance: CALCIUM CARBONATE
     Dosage: INFUSED OVER 30 MINUTES
     Route: 065
  2. ZOLEDRONIC ACID INJECTION 5 MG [Suspect]
     Active Substance: ZOLEDRONIC ACID
     Indication: OSTEOPOROSIS
     Dosage: INFUSED OVER 40 MINUTES
     Route: 065
  3. TYLENOL 650 MG [Concomitant]
     Dosage: INFUSED OVER 30 MINUTES
     Route: 065

REACTIONS (6)
  - Back pain [Recovering/Resolving]
  - Influenza like illness [Recovering/Resolving]
  - Vomiting [Recovering/Resolving]
  - Off label use [Recovering/Resolving]
  - Nausea [Recovering/Resolving]
  - Pain in extremity [Recovering/Resolving]
